FAERS Safety Report 16557795 (Version 1)
Quarter: 2019Q3

REPORT INFORMATION
  Report Type: Spontaneous
  Country: US (occurrence: US)
  Receive Date: 20190529
  Receipt Date: 20190529
  Transmission Date: 20191004
  Serious: Yes (Hospitalization)
  Sender: FDA-Public Use
  Company Number: None

PATIENT
  Age: 64 Year
  Sex: Female

DRUGS (6)
  1. SUTENT [Suspect]
     Active Substance: SUNITINIB MALATE
     Indication: NEOPLASM MALIGNANT
     Dosage: 1 CS QD 14 DAYS   Q 21 DAYS  PO
     Route: 048
     Dates: start: 20171222
  2. CL MICRO TAB [Concomitant]
  3. POT CL MICRO TAB [Concomitant]
  4. SUCRALFATE TAB [Concomitant]
  5. PANTOPRAZOLE TAB [Concomitant]
  6. ONDANSETRON TAB [Concomitant]

REACTIONS (2)
  - Neoplasm progression [None]
  - Hospitalisation [None]

NARRATIVE: CASE EVENT DATE: 20190411
